FAERS Safety Report 24943275 (Version 2)
Quarter: 2025Q2

REPORT INFORMATION
  Report Type: Spontaneous
  Country: ES (occurrence: ES)
  Receive Date: 20250207
  Receipt Date: 20250415
  Transmission Date: 20250717
  Serious: Yes (Death, Other)
  Sender: SANOFI AVENTIS
  Company Number: ES-SA-2025SA037459

PATIENT
  Age: 55 Year
  Sex: Female

DRUGS (3)
  1. ISATUXIMAB [Suspect]
     Active Substance: ISATUXIMAB
     Indication: Relapsing-remitting multiple sclerosis
  2. KYPROLIS [Concomitant]
     Active Substance: CARFILZOMIB
     Indication: Relapsing-remitting multiple sclerosis
  3. DEXAMETHASONE [Concomitant]
     Active Substance: DEXAMETHASONE
     Indication: Relapsing-remitting multiple sclerosis

REACTIONS (1)
  - Pulmonary embolism [Fatal]
